FAERS Safety Report 5006869-4 (Version None)
Quarter: 2006Q1

REPORT INFORMATION
  Report Type: 
  Country: None (occurrence: None)
  Receive Date: 20060324
  Receipt Date: 20051201
  Transmission Date: 20060701
  Serious: Yes (Hospitalization)
  Sender: FDA-Public Use
  Company Number: 05P-163-0318634-00

PATIENT
  Age: 57 Year
  Sex: Female

DRUGS (2)
  1. VALPROATE SODIUM [Suspect]
     Dosage: 250 MG, 2 IN 1 D
  2. ASPIRIN [Concomitant]

REACTIONS (2)
  - HYPERAMMONAEMIA [None]
  - METABOLIC ENCEPHALOPATHY [None]
